FAERS Safety Report 8048284-5 (Version None)
Quarter: 2012Q1

REPORT INFORMATION
  Report Type: 
  Country: None (occurrence: None)
  Receive Date: 20120117
  Receipt Date: 20120110
  Transmission Date: 20120608
  Serious: No
  Sender: FDA-Public Use
  Company Number: US-PFIZER INC-2012008033

PATIENT
  Sex: Female

DRUGS (4)
  1. LYRICA [Suspect]
     Dosage: 50 MG, (1PO AT NIGHT)
     Route: 048
  2. NEURONTIN [Suspect]
     Dosage: 600 MG, 3X/DAY
     Route: 048
  3. LYRICA [Suspect]
     Dosage: 75 MG, 2X/DAY
     Route: 048
  4. ACETYLSALICYLIC ACID [Concomitant]
     Dosage: 81 MG, 1X/DAY (1 TAB)
     Route: 048

REACTIONS (2)
  - PAIN IN EXTREMITY [None]
  - BACK PAIN [None]
